FAERS Safety Report 4993613-X (Version None)
Quarter: 2006Q2

REPORT INFORMATION
  Report Type: 
  Country: None (occurrence: None)
  Receive Date: 20060504
  Receipt Date: 20060504
  Transmission Date: 20061013
  Serious: Yes (Disabling)
  Sender: FDA-Public Use
  Company Number: None

PATIENT
  Age: 75 Year
  Sex: Female
  Weight: 49.8957 kg

DRUGS (5)
  1. ENBREL [Suspect]
     Indication: PSORIASIS
     Dosage: 25 MG SUBQ WEEKLY
     Route: 058
     Dates: start: 20031001, end: 20060101
  2. ENBREL [Suspect]
     Indication: PSORIATIC ARTHROPATHY
     Dosage: 25 MG SUBQ WEEKLY
     Route: 058
     Dates: start: 20031001, end: 20060101
  3. LEVOXIL [Concomitant]
  4. ZETIA [Concomitant]
  5. FOSAMAX [Concomitant]

REACTIONS (2)
  - BLINDNESS TRANSIENT [None]
  - RETINITIS [None]
